FAERS Safety Report 25981217 (Version 2)
Quarter: 2025Q4

REPORT INFORMATION
  Report Type: Spontaneous
  Country: US (occurrence: US)
  Receive Date: 20251030
  Receipt Date: 20251104
  Transmission Date: 20260117
  Serious: Yes (Life-Threatening)
  Sender: PFIZER
  Company Number: US-PFIZER INC-202500212604

PATIENT
  Age: 56 Year
  Sex: Male

DRUGS (2)
  1. PAXLOVID [Interacting]
     Active Substance: NIRMATRELVIR\RITONAVIR
     Indication: COVID-19 treatment
     Dosage: UNK
  2. TACROLIMUS [Interacting]
     Active Substance: TACROLIMUS
     Dosage: UNK

REACTIONS (7)
  - Drug interaction [Recovered/Resolved]
  - Immunosuppressant drug level increased [Recovered/Resolved]
  - Blood creatinine increased [Recovered/Resolved]
  - Nephropathy toxic [Recovered/Resolved]
  - Tremor [Unknown]
  - Headache [Unknown]
  - Nausea [Unknown]
